FAERS Safety Report 5045672-6 (Version None)
Quarter: 2006Q3

REPORT INFORMATION
  Report Type: 
  Country: None (occurrence: None)
  Receive Date: 20060707
  Receipt Date: 20060614
  Transmission Date: 20061208
  Serious: Yes (Death)
  Sender: FDA-Public Use
  Company Number: CA-ABBOTT-06P-028-0336041-00

PATIENT
  Sex: Female
  Weight: 147.5 kg

DRUGS (20)
  1. HUMIRA [Suspect]
     Indication: RHEUMATOID ARTHRITIS
     Route: 058
     Dates: start: 20060316
  2. PREDNISONE TAB [Concomitant]
     Indication: DRUG USE FOR UNKNOWN INDICATION
     Route: 048
     Dates: start: 19860101, end: 20060519
  3. METFORMIN [Concomitant]
     Indication: DRUG USE FOR UNKNOWN INDICATION
  4. CARBOCAL [Concomitant]
     Indication: DRUG USE FOR UNKNOWN INDICATION
  5. OXYCODONE HYDROCHLORIDE [Concomitant]
     Indication: DRUG USE FOR UNKNOWN INDICATION
  6. CLONAZEPAM [Concomitant]
     Indication: DRUG USE FOR UNKNOWN INDICATION
  7. LEVOTHYROXINE SODIUM [Concomitant]
     Indication: DRUG USE FOR UNKNOWN INDICATION
  8. LEVOTHYROXINE SODIUM [Concomitant]
  9. AMITRIPTYLINE HCL [Concomitant]
     Indication: DRUG USE FOR UNKNOWN INDICATION
     Dosage: 25 MG 1 TAB AM/3 TABS QHS
  10. RAMIPRIL [Concomitant]
     Indication: DRUG USE FOR UNKNOWN INDICATION
  11. RISEDRONATE SODIUM [Concomitant]
     Indication: DRUG USE FOR UNKNOWN INDICATION
  12. FLUTICASONE PROPIONATE [Concomitant]
     Indication: DRUG USE FOR UNKNOWN INDICATION
  13. SALBUTAMOL [Concomitant]
     Indication: DRUG USE FOR UNKNOWN INDICATION
  14. HUMAN MIXTARD [Concomitant]
     Indication: DRUG USE FOR UNKNOWN INDICATION
  15. PARACETAMOL [Concomitant]
     Indication: DRUG USE FOR UNKNOWN INDICATION
  16. OXYCODONE HYDROCHLORIDE [Concomitant]
  17. SEROVENT [Concomitant]
     Indication: DRUG USE FOR UNKNOWN INDICATION
  18. LEFLUNOMIDE [Concomitant]
     Indication: RHEUMATOID ARTHRITIS
     Route: 048
     Dates: start: 20060109, end: 20060520
  19. HYDROMORPHONE HYDROCHLORIDE [Concomitant]
     Indication: PAIN
     Route: 058
     Dates: start: 20060518, end: 20060520
  20. METHYLPREDNISOLONE SODIUM SUCCINATE [Concomitant]
     Indication: PULMONARY FIBROSIS
     Route: 042
     Dates: start: 20060515, end: 20060521

REACTIONS (2)
  - CARDIO-RESPIRATORY ARREST [None]
  - PULMONARY FIBROSIS [None]
